FAERS Safety Report 4687490-4 (Version None)
Quarter: 2005Q2

REPORT INFORMATION
  Report Type: 
  Country: None (occurrence: None)
  Receive Date: 20050610
  Receipt Date: 20050517
  Transmission Date: 20051028
  Serious: Yes (Other)
  Sender: FDA-Public Use
  Company Number: PHHO2005US07925

PATIENT
  Age: 41 Year
  Sex: Female
  Weight: 64 kg

DRUGS (1)
  1. TEGASEROD [Suspect]
     Indication: DYSPEPSIA
     Dosage: 6 MG, UNK
     Route: 048
     Dates: start: 20041220, end: 20050425

REACTIONS (4)
  - DYSFUNCTIONAL UTERINE BLEEDING [None]
  - PELVIC PAIN [None]
  - UTERINE POLYP [None]
  - UTERINE POLYPECTOMY [None]
